FAERS Safety Report 5575084-8 (Version None)
Quarter: 2007Q4

REPORT INFORMATION
  Report Type: 
  Country: None (occurrence: None)
  Receive Date: 20071130
  Receipt Date: 20070917
  Transmission Date: 20080405
  Serious: No
  Sender: FDA-Public Use
  Company Number: PHEH2007US12520

PATIENT
  Age: 60 Year
  Sex: Male
  Weight: 132.9 kg

DRUGS (4)
  1. TEKTURNA [Suspect]
     Indication: HYPERTENSION
     Dosage: 150 MG QD ORAL
     Route: 048
     Dates: start: 20070904, end: 20070913
  2. ZOCOR [Concomitant]
  3. DIOVAN HCT [Concomitant]
  4. INDERAL LA [Concomitant]

REACTIONS (3)
  - DIZZINESS [None]
  - HOT FLUSH [None]
  - HYPERHIDROSIS [None]
